FAERS Safety Report 16157427 (Version 1)
Quarter: 2019Q2

REPORT INFORMATION
  Report Type: Spontaneous
  Country: US (occurrence: US)
  Receive Date: 20190228
  Receipt Date: 20190228
  Transmission Date: 20190711
  Serious: Yes (Hospitalization)
  Sender: FDA-Public Use
  Company Number: None

PATIENT
  Age: 74 Year
  Sex: Male
  Weight: 137.4 kg

DRUGS (1)
  1. XELODA [Suspect]
     Active Substance: CAPECITABINE
     Dates: end: 20181227

REACTIONS (5)
  - Oxygen saturation abnormal [None]
  - Hypoxia [None]
  - Left ventricular failure [None]
  - Acute respiratory failure [None]
  - Respiratory tract congestion [None]

NARRATIVE: CASE EVENT DATE: 20190215
